FAERS Safety Report 8933779 (Version 1)
Quarter: 2012Q4

REPORT INFORMATION
  Report Type: 
  Country: GB (occurrence: GB)
  Receive Date: 20121129
  Receipt Date: 20121129
  Transmission Date: 20130627
  Serious: Yes (Other)
  Sender: FDA-Public Use
  Company Number: GB-ELI_LILLY_AND_COMPANY-GB201211006351

PATIENT
  Age: 60 Year
  Sex: Female
  Weight: 88.2 kg

DRUGS (10)
  1. BYETTA [Suspect]
     Indication: TYPE 2 DIABETES MELLITUS
     Dosage: 5 ug, bid
     Route: 058
     Dates: start: 201209
  2. BYETTA [Suspect]
     Dosage: 10 ug, bid
     Route: 058
     Dates: end: 20121108
  3. METFORMIN [Concomitant]
  4. ASPIRIN [Concomitant]
  5. BISOPROLOL [Concomitant]
  6. CANDESARTAN [Concomitant]
  7. FUROSEMIDE [Concomitant]
  8. INSULIN GLARGINE [Concomitant]
  9. OMEPRAZOLE [Concomitant]
  10. SPIRONOLACTONE [Concomitant]

REACTIONS (4)
  - Hyperglycaemia [Unknown]
  - Renal failure acute [Unknown]
  - Nausea [Recovered/Resolved]
  - Weight decreased [Unknown]
